FAERS Safety Report 5941215-0 (Version None)
Quarter: 2008Q4

REPORT INFORMATION
  Report Type: 
  Country: None (occurrence: None)
  Receive Date: 20081104
  Receipt Date: 20081024
  Transmission Date: 20090506
  Serious: Yes (Hospitalization, Disabling)
  Sender: FDA-Public Use
  Company Number: IE-PFIZER INC-2008090376

PATIENT
  Age: 75 Year
  Sex: Male

DRUGS (1)
  1. LIPITOR [Suspect]
     Dates: end: 20080701

REACTIONS (3)
  - CORONARY ARTERY BYPASS [None]
  - GAIT DISTURBANCE [None]
  - MUSCLE DISORDER [None]
